FAERS Safety Report 11710795 (Version 1)
Quarter: 2015Q4

REPORT INFORMATION
  Report Type: Spontaneous
  Country: US (occurrence: US)
  Receive Date: 20151104
  Receipt Date: 20151104
  Transmission Date: 20160304
  Serious: No
  Sender: FDA-Public Use
  Company Number: US-ELI_LILLY_AND_COMPANY-US201104006555

PATIENT
  Age: 71 Year
  Sex: Female

DRUGS (9)
  1. STATIN                             /00084401/ [Concomitant]
     Dosage: 40 MG, QD
     Dates: start: 20101111
  2. FISH OIL [Concomitant]
     Active Substance: FISH OIL
  3. CALCIUM [Concomitant]
     Active Substance: CALCIUM
     Dosage: 600 MG, UNK
  4. FORTEO [Suspect]
     Active Substance: TERIPARATIDE
     Indication: OSTEOPOROSIS
     Dosage: 30 UG, QD
     Dates: start: 20110330
  5. MULTIVITAMIN [Concomitant]
     Active Substance: VITAMINS
  6. FIBER [Concomitant]
     Active Substance: PSYLLIUM HUSK
  7. LISINOPRIL. [Concomitant]
     Active Substance: LISINOPRIL
     Dosage: 10 MG, UNK
     Dates: start: 201103
  8. VITAMIN D [Concomitant]
     Active Substance: CHOLECALCIFEROL
  9. GLUCOSAMINE + CHONDROITIN [Concomitant]

REACTIONS (4)
  - Orthostatic hypotension [Unknown]
  - Intestinal congestion [Unknown]
  - Incorrect dose administered [Unknown]
  - Muscle spasms [Unknown]

NARRATIVE: CASE EVENT DATE: 20110330
